FAERS Safety Report 8731590 (Version 2)
Quarter: 2012Q4

REPORT INFORMATION
  Report Type: 
  Country: US (occurrence: US)
  Receive Date: 20120820
  Receipt Date: 20120921
  Transmission Date: 20130627
  Serious: Yes (Death)
  Sender: FDA-Public Use
  Company Number: US-JNJFOC-20120807774

PATIENT
  Age: 34 Year
  Sex: Male
  Weight: 102.06 kg

DRUGS (8)
  1. STELARA [Suspect]
     Indication: PSORIATIC ARTHROPATHY
     Route: 058
     Dates: start: 201203, end: 201203
  2. STELARA [Suspect]
     Indication: PSORIATIC ARTHROPATHY
     Route: 058
     Dates: start: 20120618, end: 20120618
  3. STELARA [Suspect]
     Indication: PSORIATIC ARTHROPATHY
     Route: 058
     Dates: start: 20120209, end: 20120209
  4. STELARA [Suspect]
     Indication: PSORIASIS
     Route: 058
     Dates: start: 20120618, end: 20120618
  5. STELARA [Suspect]
     Indication: PSORIASIS
     Route: 058
     Dates: start: 201203, end: 201203
  6. STELARA [Suspect]
     Indication: PSORIASIS
     Route: 058
     Dates: start: 20120209, end: 20120209
  7. METHOTREXATE [Suspect]
     Indication: PSORIATIC ARTHROPATHY
     Route: 048
     Dates: start: 20110630, end: 20120209
  8. METHOTREXATE [Suspect]
     Indication: PSORIASIS
     Route: 048
     Dates: start: 20110630, end: 20120209

REACTIONS (2)
  - Cardiac failure [Fatal]
  - Off label use [Unknown]
